FAERS Safety Report 10364461 (Version 1)
Quarter: 2014Q3

REPORT INFORMATION
  Report Type: Spontaneous
  Country: US (occurrence: None)
  Receive Date: 20140805
  Receipt Date: 20140805
  Transmission Date: 20150326
  Serious: No
  Sender: FDA-Public Use
  Company Number: None

PATIENT
  Age: 63 Year
  Sex: Female
  Weight: 52.2 kg

DRUGS (1)
  1. BEVACIZUMAB(RHUMAB VEGF) [Suspect]
     Active Substance: BEVACIZUMAB

REACTIONS (7)
  - Disturbance in attention [None]
  - Blood pressure increased [None]
  - Cerebral atrophy [None]
  - Cerebellar atrophy [None]
  - Lacunar infarction [None]
  - Confusional state [None]
  - Dizziness [None]

NARRATIVE: CASE EVENT DATE: 20140725
